FAERS Safety Report 5808246-2 (Version None)
Quarter: 2008Q3

REPORT INFORMATION
  Report Type: 
  Country: None (occurrence: None)
  Receive Date: 20080711
  Receipt Date: 20080701
  Transmission Date: 20090109
  Serious: Yes (Hospitalization)
  Sender: FDA-Public Use
  Company Number: PL-AMGEN-UK279052

PATIENT
  Sex: Male

DRUGS (7)
  1. PANITUMUMAB [Suspect]
     Indication: COLORECTAL CANCER
     Route: 042
     Dates: start: 20070522
  2. TRAMADOL HCL [Concomitant]
     Route: 048
     Dates: start: 20071012
  3. MEGACE [Concomitant]
     Route: 048
     Dates: start: 20070817
  4. OMEPRAZOLE [Concomitant]
     Route: 048
     Dates: start: 20070522
  5. OXALIPLATIN [Concomitant]
     Route: 042
     Dates: start: 20070522
  6. FLUOROURACIL [Concomitant]
     Route: 042
     Dates: start: 20070522
  7. LEUCOVORIN CALCIUM [Concomitant]
     Route: 042
     Dates: start: 20070522

REACTIONS (1)
  - HYPOKALAEMIA [None]
